FAERS Safety Report 4389116-6 (Version None)
Quarter: 2004Q2

REPORT INFORMATION
  Report Type: 
  Country: None (occurrence: None)
  Receive Date: 20040628
  Receipt Date: 20040616
  Transmission Date: 20050107
  Serious: Yes (Hospitalization)
  Sender: FDA-Public Use
  Company Number: CIP04001224

PATIENT
  Age: 78 Year

DRUGS (1)
  1. ACTONEL [Suspect]
     Indication: OSTEOPOROSIS
     Dosage: 2.5 MG, DAILY, ORAL
     Route: 048
     Dates: start: 20040510, end: 20040510

REACTIONS (5)
  - CHOLANGITIS ACUTE [None]
  - CONDITION AGGRAVATED [None]
  - JAUNDICE CHOLESTATIC [None]
  - PYREXIA [None]
  - REFUSAL OF TREATMENT BY PATIENT [None]
